FAERS Safety Report 8353471-2 (Version None)
Quarter: 2012Q2

REPORT INFORMATION
  Report Type: 
  Country: None (occurrence: None)
  Receive Date: 20120511
  Receipt Date: 20110406
  Transmission Date: 20120825
  Serious: No
  Sender: FDA-Public Use
  Company Number: US-GLAXOSMITHKLINE-A0921676A

PATIENT
  Age: 56 Year
  Sex: Female

DRUGS (3)
  1. TYKERB [Suspect]
     Indication: BREAST CANCER
     Dosage: 18TAB PER DAY
     Route: 048
     Dates: start: 20110316
  2. PAXIL [Concomitant]
  3. UNKNOWN STOMACH MEDICATION [Concomitant]

REACTIONS (5)
  - VOMITING [None]
  - OVERDOSE [None]
  - DISEASE PROGRESSION [None]
  - OEDEMA PERIPHERAL [None]
  - DIARRHOEA [None]
